FAERS Safety Report 9311294 (Version 4)
Quarter: 2013Q3

REPORT INFORMATION
  Report Type: Spontaneous
  Country: JP (occurrence: JP)
  Receive Date: 20130528
  Receipt Date: 20130828
  Transmission Date: 20140515
  Serious: Yes (Hospitalization, Other)
  Sender: FDA-Public Use
  Company Number: JP-ASTELLAS-2013JP006037

PATIENT
  Age: 76 Year
  Sex: Male
  Weight: 62.4 kg

DRUGS (16)
  1. BETANIS [Suspect]
     Indication: HYPERTONIC BLADDER
     Dosage: 50 MG, UID/QD
     Route: 048
     Dates: start: 20121118, end: 20130510
  2. TAMBOCOR [Interacting]
     Indication: ANGINA PECTORIS
     Dosage: 100 MG, BID
     Route: 048
     Dates: start: 20130315
  3. TAMBOCOR [Interacting]
     Indication: MYOCARDIAL INFARCTION
  4. TAMBOCOR [Interacting]
     Indication: ARRHYTHMIA
  5. ITOROL [Concomitant]
     Indication: ANGINA PECTORIS
     Dosage: 20 MG, BID
     Route: 048
  6. LANSOPRAZOLE [Concomitant]
     Indication: GASTRITIS
     Dosage: 15 MG, UID/QD
     Route: 048
     Dates: start: 20080909
  7. TANATRIL [Concomitant]
     Indication: HYPERTENSION
     Dosage: 5 MG, UID/QD
     Route: 048
     Dates: start: 20090605
  8. GASTROM [Concomitant]
     Indication: GASTRITIS
     Dosage: 1.5 G, BID
     Route: 048
     Dates: start: 20081118
  9. MAGLAX [Concomitant]
     Indication: GASTRITIS
     Dosage: 330 MG, BID
     Route: 048
     Dates: start: 20081118
  10. NIKORANMART [Concomitant]
     Indication: ANGINA PECTORIS
     Dosage: 5 MG, BID
     Route: 048
     Dates: start: 20130315
  11. SERENAL                            /00358201/ [Concomitant]
     Indication: ANXIETY DISORDER
     Dosage: 20 MG, BID
     Route: 048
     Dates: start: 20090731
  12. LIVALO [Concomitant]
     Indication: HYPERLIPIDAEMIA
     Dosage: 1 MG, UID/QD
     Route: 048
     Dates: start: 20100319
  13. LANIRAPID [Concomitant]
     Indication: ARRHYTHMIA
     Dosage: 0.05 MG, UID/QD
     Route: 048
     Dates: start: 20130208
  14. ASPIRIN [Concomitant]
     Indication: ANGINA PECTORIS
     Dosage: 100 MG, UID/QD
     Route: 048
     Dates: start: 20130315
  15. DEPAS [Concomitant]
     Indication: ANXIETY DISORDER
     Dosage: 0.5 MG, UID/QD
     Route: 048
     Dates: start: 20130315
  16. HERBESSER R [Concomitant]
     Indication: HYPERTENSION
     Dosage: 100 MG, UID/QD
     Route: 048

REACTIONS (6)
  - Drug interaction [Recovering/Resolving]
  - Medication error [Unknown]
  - Loss of consciousness [Recovering/Resolving]
  - Palpitations [Recovering/Resolving]
  - Cardiac failure [Recovering/Resolving]
  - Chest pain [Recovered/Resolved]
